FAERS Safety Report 10498725 (Version 1)
Quarter: 2014Q4

REPORT INFORMATION
  Report Type: Spontaneous
  Country: US (occurrence: US)
  Receive Date: 20141006
  Receipt Date: 20141006
  Transmission Date: 20150528
  Serious: Yes (Other)
  Sender: FDA-Public Use
  Company Number: US-PERRIGO-14US009801

PATIENT
  Age: 15 Month
  Sex: Male

DRUGS (1)
  1. IBUPROFEN 200MG-DIPHENHYDRAMINE CITRATE 38 MG 8K7 [Suspect]
     Active Substance: DIPHENHYDRAMINE HYDROCHLORIDE\IBUPROFEN
     Indication: ACCIDENTAL OVERDOSE
     Dosage: THREE TABLETS, SINGLE
     Route: 048

REACTIONS (2)
  - Accidental overdose [Unknown]
  - Accidental exposure to product by child [None]
